FAERS Safety Report 13912669 (Version 1)
Quarter: 2017Q3

REPORT INFORMATION
  Report Type: Spontaneous
  Country: US (occurrence: US)
  Receive Date: 20170828
  Receipt Date: 20170828
  Transmission Date: 20171127
  Serious: Yes (Other)
  Sender: FDA-Public Use
  Company Number: PHHY2017US124638

PATIENT
  Age: 70 Year
  Sex: Female

DRUGS (7)
  1. ASPIRIN. [Concomitant]
     Active Substance: ASPIRIN
     Indication: FIBROMYALGIA
     Dosage: UNK
     Route: 065
  2. COMBIPATCH [Suspect]
     Active Substance: ESTRADIOL\NORETHINDRONE ACETATE
     Indication: PAIN IN EXTREMITY
     Dosage: 1 DF (50/140 MG), QW2
     Route: 062
  3. COMBIPATCH [Suspect]
     Active Substance: ESTRADIOL\NORETHINDRONE ACETATE
     Indication: HOT FLUSH
     Dosage: 1 DF (50/140 MG), QW2
     Route: 062
  4. EFFEXOR [Suspect]
     Active Substance: VENLAFAXINE HYDROCHLORIDE
     Dosage: 75 MG, UNK
     Route: 065
  5. COMBIPATCH [Suspect]
     Active Substance: ESTRADIOL\NORETHINDRONE ACETATE
     Indication: INSOMNIA
     Dosage: 1 DF (50/140 MG), QW2
     Route: 062
     Dates: start: 201707
  6. EFFEXOR [Suspect]
     Active Substance: VENLAFAXINE HYDROCHLORIDE
     Indication: PRODUCT USED FOR UNKNOWN INDICATION
     Dosage: 75 MG, UNK
     Route: 065
  7. EFFEXOR [Suspect]
     Active Substance: VENLAFAXINE HYDROCHLORIDE
     Dosage: 75 MG, UNK
     Route: 065

REACTIONS (6)
  - Off label use [Unknown]
  - Drug dose omission [Not Recovered/Not Resolved]
  - Therapeutic response unexpected [Unknown]
  - Pain in extremity [Not Recovered/Not Resolved]
  - Type 2 diabetes mellitus [Unknown]
  - Weight decreased [Unknown]

NARRATIVE: CASE EVENT DATE: 201707
